FAERS Safety Report 13266848 (Version 2)
Quarter: 2017Q2

REPORT INFORMATION
  Report Type: Report from Study
  Country: None (occurrence: DE)
  Receive Date: 20170224
  Receipt Date: 20170616
  Transmission Date: 20170830
  Serious: Yes (Hospitalization, Disabling)
  Sender: FDA-Public Use
  Company Number: DE-ABBVIE-17K-062-1884581-00

PATIENT
  Age: 72 Year
  Sex: Female

DRUGS (2)
  1. HUMIRA [Suspect]
     Active Substance: ADALIMUMAB
     Indication: RHEUMATOID ARTHRITIS
     Route: 058
  2. HUMIRA [Suspect]
     Active Substance: ADALIMUMAB
     Indication: RHEUMATOID ARTHRITIS
     Route: 058
     Dates: start: 20100115

REACTIONS (7)
  - Blood pressure fluctuation [Not Recovered/Not Resolved]
  - Tinnitus [Not Recovered/Not Resolved]
  - Paraesthesia ear [Not Recovered/Not Resolved]
  - Cystitis [Not Recovered/Not Resolved]
  - Sudden hearing loss [Not Recovered/Not Resolved]
  - Blood glucose increased [Not Recovered/Not Resolved]
  - Blood cholesterol increased [Not Recovered/Not Resolved]

NARRATIVE: CASE EVENT DATE: 201610
